FAERS Safety Report 12734046 (Version 1)
Quarter: 2016Q3

REPORT INFORMATION
  Report Type: Spontaneous
  Country: US (occurrence: US)
  Receive Date: 20160912
  Receipt Date: 20160912
  Transmission Date: 20161109
  Serious: No
  Sender: FDA-Public Use
  Company Number: US-009507513-1609USA004349

PATIENT
  Age: 24 Year
  Sex: Female
  Weight: 115.65 kg

DRUGS (1)
  1. NEXPLANON [Suspect]
     Active Substance: ETONOGESTREL
     Dosage: 68MG EVERY 3 YEARS
     Route: 059
     Dates: start: 20130829, end: 20160901

REACTIONS (3)
  - Device breakage [Recovered/Resolved]
  - Incorrect drug administration duration [Recovered/Resolved]
  - Product quality issue [Unknown]

NARRATIVE: CASE EVENT DATE: 20160829
